FAERS Safety Report 10957418 (Version 1)
Quarter: 2015Q1

REPORT INFORMATION
  Report Type: Spontaneous
  Country: US (occurrence: None)
  Receive Date: 20150325
  Receipt Date: 20150325
  Transmission Date: 20150721
  Serious: No
  Sender: FDA-Public Use
  Company Number: None

PATIENT
  Age: 29 Year
  Sex: Female
  Weight: 51 kg

DRUGS (2)
  1. DULOXETINE [Concomitant]
     Active Substance: DULOXETINE
  2. LATISSE [Suspect]
     Active Substance: BIMATOPROST
     Indication: GROWTH OF EYELASHES
     Dosage: APPLIED TO A SURFACE, USUALLY THE SKIN

REACTIONS (3)
  - Visual acuity reduced [None]
  - Astigmatism [None]
  - Vision blurred [None]

NARRATIVE: CASE EVENT DATE: 20150324
